FAERS Safety Report 8575624-0 (Version None)
Quarter: 2012Q3

REPORT INFORMATION
  Report Type: 
  Country: None (occurrence: None)
  Receive Date: 20120807
  Receipt Date: 20120730
  Transmission Date: 20120928
  Serious: Yes (Congenital Anomaly, Other)
  Sender: FDA-Public Use
  Company Number: US-UCBSA-047556

PATIENT
  Sex: Male
  Weight: 2.15 kg

DRUGS (8)
  1. FOLIC ACID [Concomitant]
     Indication: PREGNANCY
     Route: 064
     Dates: start: 20100101, end: 20110615
  2. FERROUS SULFATE TAB [Concomitant]
     Indication: ANAEMIA
     Route: 064
  3. PEPCID AC [Concomitant]
     Indication: DYSPEPSIA
     Route: 064
     Dates: end: 20110615
  4. KEPPRA XR [Suspect]
     Indication: CONVULSION
     Dosage: TOTAL DAILY DOSE : 3000 MG
     Route: 064
     Dates: end: 20110615
  5. KEPPRA XR [Suspect]
     Indication: EPILEPSY
     Dosage: TOTAL DAILY DOSE : 3000 MG
     Route: 064
     Dates: end: 20110615
  6. TYLENOL [Concomitant]
     Indication: HEADACHE
     Dosage: 1 CAPSULE AS NEEDED
     Route: 064
     Dates: end: 20110615
  7. PRENATAL COMPLETE [Concomitant]
     Indication: VITAMIN SUPPLEMENTATION
     Route: 064
     Dates: end: 20110615
  8. TRAZODONE HYDROCHLORIDE [Concomitant]
     Indication: ANXIETY
     Route: 064
     Dates: start: 20100101, end: 20100101

REACTIONS (6)
  - DYSMORPHISM [None]
  - FOETAL EXPOSURE DURING PREGNANCY [None]
  - ABNORMAL PALMAR/PLANTAR CREASES [None]
  - TRISOMY 21 [None]
  - HYPOTONIA [None]
  - PREMATURE BABY [None]
